FAERS Safety Report 24540310 (Version 5)
Quarter: 2025Q1

REPORT INFORMATION
  Report Type: Spontaneous
  Country: CO (occurrence: CO)
  Receive Date: 20241023
  Receipt Date: 20250228
  Transmission Date: 20250408
  Serious: No
  Sender: PFIZER
  Company Number: CO-PFIZER INC-PV202400133043

PATIENT
  Age: 10 Year
  Sex: Female
  Weight: 23.8 kg

DRUGS (1)
  1. GENOTROPIN [Suspect]
     Active Substance: SOMATROPIN
     Indication: Growth retardation
     Dosage: 1 MG, DAILY
     Route: 058
     Dates: start: 2022

REACTIONS (5)
  - Device issue [Unknown]
  - Device delivery system issue [Unknown]
  - Device leakage [Unknown]
  - Poor quality device used [Unknown]
  - Incorrect dose administered by device [Unknown]
